FAERS Safety Report 8413400-X (Version None)
Quarter: 2012Q2

REPORT INFORMATION
  Report Type: 
  Country: None (occurrence: None)
  Receive Date: 20120605
  Receipt Date: 20120530
  Transmission Date: 20120825
  Serious: Yes (Disabling)
  Sender: FDA-Public Use
  Company Number: US-PFIZER INC-2012110922

PATIENT
  Sex: Female

DRUGS (7)
  1. ZYVOX [Suspect]
     Indication: STAPHYLOCOCCAL INFECTION
     Dosage: UNK
  2. GABAPENTIN [Concomitant]
     Dosage: 300 MG, NIGHTLY
  3. THYROID TAB [Concomitant]
     Dosage: UNK
  4. NORCO [Concomitant]
     Dosage: 10/325 UNK, SIX PILLS DAILY
  5. ACETYLSALICYLIC ACID [Concomitant]
     Dosage: 81 MG, DAILY
  6. NEURONTIN [Concomitant]
     Dosage: 600 MG, 3X/DAY
  7. MULTI-VITAMINS [Concomitant]
     Dosage: UNK

REACTIONS (7)
  - PARAESTHESIA [None]
  - PAIN IN EXTREMITY [None]
  - OSTEOPENIA [None]
  - DIARRHOEA [None]
  - NEUROPATHY PERIPHERAL [None]
  - MUSCULAR WEAKNESS [None]
  - HYPOAESTHESIA [None]
